FAERS Safety Report 5087084-5 (Version None)
Quarter: 2006Q3

REPORT INFORMATION
  Report Type: 
  Country: None (occurrence: None)
  Receive Date: 20060821
  Receipt Date: 20060726
  Transmission Date: 20061208
  Serious: Yes (Other)
  Sender: FDA-Public Use
  Company Number: 2006098298

PATIENT
  Age: 49 Year
  Sex: Male

DRUGS (1)
  1. VIBRAMYCIN N         (DOXCYCLINE) [Suspect]
     Indication: TOOTH DISORDER
     Dosage: 200 MG (100 MG, 2 IN 1 D, ORAL
     Route: 048

REACTIONS (6)
  - ABASIA [None]
  - DRUG ERUPTION [None]
  - ERYTHEMA [None]
  - PAIN [None]
  - PENILE PAIN [None]
  - RASH PUSTULAR [None]
